FAERS Safety Report 7059377-3 (Version None)
Quarter: 2010Q4

REPORT INFORMATION
  Report Type: 
  Country: None (occurrence: None)
  Receive Date: 20101025
  Receipt Date: 20101008
  Transmission Date: 20110411
  Serious: Yes (Other)
  Sender: FDA-Public Use
  Company Number: BR-BAYER-201015104LA

PATIENT
  Age: 42 Year
  Sex: Female
  Weight: 58 kg

DRUGS (3)
  1. MIRENA [Suspect]
     Indication: ANAEMIA
     Dosage: FREQUENCY: CONTINUOUS
     Route: 015
     Dates: start: 20100315, end: 20100901
  2. RIVOTRIL [Concomitant]
     Indication: SLEEP DISORDER
     Dosage: 3 DROPS A DAY
     Route: 048
     Dates: start: 20090101
  3. AMITRIL [Concomitant]
     Indication: SLEEP DISORDER
     Dosage: 1/2 TABLET A DAY
     Route: 048
     Dates: start: 20090101

REACTIONS (43)
  - ABDOMINAL PAIN UPPER [None]
  - ACNE [None]
  - AFFECT LABILITY [None]
  - ANAEMIA [None]
  - ANOGENITAL WARTS [None]
  - ANXIETY [None]
  - BACK PAIN [None]
  - BLINDNESS [None]
  - BONE DISORDER [None]
  - BREAST PAIN [None]
  - COLITIS EROSIVE [None]
  - CRYING [None]
  - DEPRESSION [None]
  - FEAR [None]
  - FEELING ABNORMAL [None]
  - GASTRIC POLYPS [None]
  - GASTRITIS [None]
  - GASTROOESOPHAGEAL REFLUX DISEASE [None]
  - HAIR COLOUR CHANGES [None]
  - HEAD DISCOMFORT [None]
  - HYPOMENORRHOEA [None]
  - ILEITIS [None]
  - IRRITABLE BOWEL SYNDROME [None]
  - LABYRINTHITIS [None]
  - LIBIDO DECREASED [None]
  - MOOD ALTERED [None]
  - MUSCLE TIGHTNESS [None]
  - NERVOUSNESS [None]
  - OESOPHAGITIS [None]
  - PAIN IN EXTREMITY [None]
  - PANIC DISORDER [None]
  - PEAU D'ORANGE [None]
  - PREMENSTRUAL SYNDROME [None]
  - RASH [None]
  - SEBORRHOEA [None]
  - SKIN PAPILLOMA [None]
  - SKIN WRINKLING [None]
  - STRESS [None]
  - SUICIDAL IDEATION [None]
  - SUPERFICIAL VEIN PROMINENCE [None]
  - TACHYCARDIA [None]
  - VARICOSE VEIN [None]
  - VISION BLURRED [None]
